FAERS Safety Report 6498175-6 (Version None)
Quarter: 2009Q4

REPORT INFORMATION
  Report Type: 
  Country: None (occurrence: None)
  Receive Date: 20091215
  Receipt Date: 20091203
  Transmission Date: 20100525
  Serious: Yes (Hospitalization, Other)
  Sender: FDA-Public Use
  Company Number: NZ-ELI_LILLY_AND_COMPANY-NZ200912000627

PATIENT
  Age: 55 Year
  Sex: Female

DRUGS (3)
  1. ZYPREXA [Suspect]
     Indication: BIPOLAR DISORDER
     Dosage: 10 MG, UNKNOWN
     Route: 048
  2. ZYPREXA [Interacting]
     Dosage: 20 MG, UNKNOWN
     Route: 048
     Dates: start: 20090101, end: 20090101
  3. ZYPREXA [Interacting]
     Dosage: 15 MG, UNKNOWN
     Route: 048
     Dates: start: 20090101

REACTIONS (4)
  - BIPOLAR DISORDER [None]
  - MUSCLE CONTRACTIONS INVOLUNTARY [None]
  - TARDIVE DYSKINESIA [None]
  - TREMOR [None]
